FAERS Safety Report 11203817 (Version 1)
Quarter: 2015Q2

REPORT INFORMATION
  Report Type: Spontaneous
  Country: US (occurrence: US)
  Receive Date: 20150619
  Receipt Date: 20150619
  Transmission Date: 20150821
  Serious: Yes (Hospitalization, Other)
  Sender: FDA-Public Use
  Company Number: US-ASTRAZENECA-2015SE59546

PATIENT
  Sex: Male
  Weight: 86.2 kg

DRUGS (7)
  1. VITAMINS [Concomitant]
     Active Substance: VITAMINS
  2. FLUTICASONE [Concomitant]
     Active Substance: FLUTICASONE\FLUTICASONE PROPIONATE
  3. RHINOCORT AQUA [Suspect]
     Active Substance: BUDESONIDE
     Indication: SINUS DISORDER
     Dosage: TAKES 1 OR 2 SPRAYS PER NOSTRIL
     Route: 045
  4. RHINOCORT AQUA [Suspect]
     Active Substance: BUDESONIDE
     Indication: SINUS DISORDER
     Dosage: 32 MCG, 2 SPRAYS PER NOSTRIL ONCE A DAY AT BEDTIME
     Route: 045
  5. UNKNOWN BLOOD PRESSURE MEDICINE [Concomitant]
     Active Substance: UNSPECIFIED INGREDIENT
     Indication: HYPERTENSION
  6. UNKNOWN CHOLESTEROL MEDICINE [Concomitant]
     Indication: BLOOD CHOLESTEROL INCREASED
  7. FLUTICASONE [Concomitant]
     Active Substance: FLUTICASONE\FLUTICASONE PROPIONATE
     Dosage: FLONEX

REACTIONS (6)
  - Visual impairment [Unknown]
  - Off label use [Unknown]
  - Weight fluctuation [Unknown]
  - Intentional product misuse [Unknown]
  - Colon cancer [Unknown]
  - Mydriasis [Unknown]

NARRATIVE: CASE EVENT DATE: 201406
